FAERS Safety Report 15415173 (Version 1)
Quarter: 2018Q3

REPORT INFORMATION
  Report Type: Spontaneous
  Country: ES (occurrence: ES)
  Receive Date: 20180921
  Receipt Date: 20180921
  Transmission Date: 20181010
  Serious: Yes (Hospitalization, Other)
  Sender: FDA-Public Use
  Company Number: PHHY2018ES103598

PATIENT
  Age: 39 Year
  Sex: Female

DRUGS (5)
  1. GABAPENTIN. [Interacting]
     Active Substance: GABAPENTIN
     Dosage: 300 MG, Q12H
     Route: 048
     Dates: start: 20160818
  2. FENTANYL. [Interacting]
     Active Substance: FENTANYL
     Indication: SPINAL PAIN
     Dosage: 50 UG, QD
     Route: 062
     Dates: start: 20160817
  3. DIAZEPAM. [Suspect]
     Active Substance: DIAZEPAM
     Indication: SPINAL PAIN
     Dosage: 5 MG, QD
     Route: 048
     Dates: start: 2015
  4. FENTANYL. [Interacting]
     Active Substance: FENTANYL
     Dosage: 50 UG, QD
     Route: 062
     Dates: start: 20160818
  5. GABAPENTIN. [Suspect]
     Active Substance: GABAPENTIN
     Indication: SPINAL PAIN
     Dosage: 300 MG, Q12H
     Route: 048
     Dates: start: 20160817

REACTIONS (1)
  - Encephalopathy [Recovered/Resolved]

NARRATIVE: CASE EVENT DATE: 20160818
